FAERS Safety Report 4369689-X (Version None)
Quarter: 2004Q2

REPORT INFORMATION
  Report Type: 
  Country: None (occurrence: None)
  Receive Date: 20040527
  Receipt Date: 20040517
  Transmission Date: 20050107
  Serious: No
  Sender: FDA-Public Use
  Company Number: 04P-056-0261154-00

PATIENT
  Age: 68 Year
  Sex: Female

DRUGS (1)
  1. TRICOR [Suspect]
     Indication: LIPIDS INCREASED
     Dosage: 200 MG, ORAL
     Route: 048

REACTIONS (9)
  - ANTINUCLEAR ANTIBODY POSITIVE [None]
  - AUTOIMMUNE DISORDER [None]
  - HYPERKERATOSIS [None]
  - MYALGIA [None]
  - POLYARTHRITIS [None]
  - POLYMYOSITIS [None]
  - PULMONARY FIBROSIS [None]
  - SKIN FISSURES [None]
  - VASCULITIS [None]
